FAERS Safety Report 20858229 (Version 1)
Quarter: 2022Q2

REPORT INFORMATION
  Report Type: Report from Study
  Country: MX (occurrence: MX)
  Receive Date: 20220521
  Receipt Date: 20220521
  Transmission Date: 20220721
  Serious: Yes (Hospitalization)
  Sender: FDA-Public Use
  Company Number: MX-NOVARTISPH-NVSC2022MX093414

PATIENT
  Sex: Female
  Weight: 75 kg

DRUGS (1)
  1. EXFORGE HCT [Suspect]
     Active Substance: AMLODIPINE BESYLATE\HYDROCHLOROTHIAZIDE\VALSARTAN
     Indication: Hypertension
     Dosage: 1 DF, QD (5/160/12.5MG)
     Route: 048
     Dates: start: 2012

REACTIONS (3)
  - Cartilage injury [Not Recovered/Not Resolved]
  - Dyskinesia [Recovering/Resolving]
  - Pain [Unknown]
